FAERS Safety Report 17117626 (Version 1)
Quarter: 2019Q4

REPORT INFORMATION
  Report Type: Spontaneous
  Country: US (occurrence: US)
  Receive Date: 20191205
  Receipt Date: 20191205
  Transmission Date: 20200122
  Serious: No
  Sender: FDA-Public Use
  Company Number: US-BIOCODEX SA-201901036

PATIENT
  Sex: Male

DRUGS (1)
  1. DIACOMIT [Suspect]
     Active Substance: STIRIPENTOL
     Indication: PRODUCT USED FOR UNKNOWN INDICATION
     Dosage: 500 MG TWICE A DAY
     Route: 065
     Dates: start: 20190511

REACTIONS (5)
  - Somnolence [Unknown]
  - Abdominal pain upper [Unknown]
  - Ulcer [Unknown]
  - Decreased appetite [Unknown]
  - Eating disorder [Unknown]
